FAERS Safety Report 6243927-0 (Version None)
Quarter: 2009Q2

REPORT INFORMATION
  Report Type: 
  Country: None (occurrence: None)
  Receive Date: 20090624
  Receipt Date: 20090615
  Transmission Date: 20091009
  Serious: Yes (Other)
  Sender: FDA-Public Use
  Company Number: US-AMGEN-QUU349013

PATIENT
  Sex: Male
  Weight: 98.1 kg

DRUGS (2)
  1. ENBREL [Suspect]
     Indication: PSORIATIC ARTHROPATHY
     Route: 058
     Dates: start: 20090518, end: 20090521
  2. ENBREL [Suspect]
     Indication: PSORIASIS

REACTIONS (2)
  - EAR PAIN [None]
  - FACIAL PALSY [None]
